FAERS Safety Report 8409352-9 (Version None)
Quarter: 2012Q2

REPORT INFORMATION
  Report Type: 
  Country: None (occurrence: None)
  Receive Date: 20120605
  Receipt Date: 20120529
  Transmission Date: 20120825
  Serious: No
  Sender: FDA-Public Use
  Company Number: US-BIOGENIDEC-2012BI016912

PATIENT
  Age: 41 Year
  Sex: Female

DRUGS (1)
  1. TYSABRI [Suspect]
     Indication: MULTIPLE SCLEROSIS
     Route: 042
     Dates: start: 20080502

REACTIONS (7)
  - FEELING ABNORMAL [None]
  - FATIGUE [None]
  - CRYING [None]
  - MENTAL DISORDER [None]
  - CONFUSIONAL STATE [None]
  - STRESS [None]
  - DRUG EFFECT DECREASED [None]
